FAERS Safety Report 12699131 (Version 1)
Quarter: 2016Q3

REPORT INFORMATION
  Report Type: Report from Study
  Country: GB (occurrence: GB)
  Receive Date: 20160830
  Receipt Date: 20160830
  Transmission Date: 20161109
  Serious: Yes (Hospitalization)
  Sender: FDA-Public Use
  Company Number: PHHO2011GB025643

PATIENT
  Age: 62 Year
  Sex: Male
  Weight: 60.5 kg

DRUGS (1)
  1. CHLORAMBUCIL [Suspect]
     Active Substance: CHLORAMBUCIL
     Indication: CHRONIC LYMPHOCYTIC LEUKAEMIA
     Dosage: DAYS 1-7 EVERY 28 DAYS
     Route: 048
     Dates: start: 20110308, end: 20110314

REACTIONS (1)
  - Empyema [Recovered/Resolved with Sequelae]

NARRATIVE: CASE EVENT DATE: 20110530
